FAERS Safety Report 18771964 (Version 2)
Quarter: 2021Q1

REPORT INFORMATION
  Report Type: Spontaneous
  Country: US (occurrence: US)
  Receive Date: 20210121
  Receipt Date: 20210302
  Transmission Date: 20210419
  Serious: Yes (Hospitalization, Other)
  Sender: FDA-Public Use
  Company Number: US-ELI_LILLY_AND_COMPANY-US202101004572

PATIENT
  Age: 35 Year
  Sex: Female
  Weight: 162.2 kg

DRUGS (1)
  1. BAMLANIVIMAB 700MG [Suspect]
     Active Substance: BAMLANIVIMAB
     Indication: COVID-19
     Dosage: 700 MG, SINGLE
     Route: 042
     Dates: start: 20210102, end: 20210102

REACTIONS (3)
  - COVID-19 pneumonia [Unknown]
  - Blood pressure increased [Recovered/Resolved]
  - Respiratory failure [Unknown]

NARRATIVE: CASE EVENT DATE: 20210104
